FAERS Safety Report 7487707-7 (Version None)
Quarter: 2011Q2

REPORT INFORMATION
  Report Type: 
  Country: None (occurrence: None)
  Receive Date: 20110518
  Receipt Date: 20110506
  Transmission Date: 20111010
  Serious: Yes (Other)
  Sender: FDA-Public Use
  Company Number: PHHY2011DE39658

PATIENT
  Age: 82 Year
  Sex: Female

DRUGS (3)
  1. ZOLEDRONIC ACID [Suspect]
     Dosage: UNK
     Dates: start: 20020501, end: 20050609
  2. IBANDRONATE SODIUM [Suspect]
     Dosage: UNK
     Route: 042
     Dates: start: 20000601, end: 20011001
  3. PAMIDRONATE DISODIUM [Suspect]
     Dosage: UNK
     Route: 042
     Dates: start: 20011001, end: 20020501

REACTIONS (2)
  - ABSCESS JAW [None]
  - OSTEONECROSIS OF JAW [None]
